FAERS Safety Report 21303031 (Version 5)
Quarter: 2023Q1

REPORT INFORMATION
  Report Type: Report from Study
  Country: CA (occurrence: CA)
  Receive Date: 20220907
  Receipt Date: 20230113
  Transmission Date: 20230417
  Serious: Yes (Other)
  Sender: FDA-Public Use
  Company Number: CA-TAKEDA-2022TUS044378

PATIENT
  Age: 39 Year
  Sex: Female

DRUGS (3)
  1. HUMAN IMMUNOGLOBULIN G [Suspect]
     Active Substance: HUMAN IMMUNOGLOBULIN G
     Indication: Infertility female
     Dosage: 6 GRAM, 1/WEEK
     Route: 058
     Dates: start: 20220630, end: 2022
  2. HUMAN IMMUNOGLOBULIN G [Suspect]
     Active Substance: HUMAN IMMUNOGLOBULIN G
     Dosage: 6 GRAM, 1/WEEK
     Route: 058
     Dates: start: 20220630
  3. HUMAN IMMUNOGLOBULIN G [Suspect]
     Active Substance: HUMAN IMMUNOGLOBULIN G
     Dosage: 6 GRAM, 1/WEEK
     Route: 058
     Dates: start: 20220630

REACTIONS (5)
  - Foetal death [Unknown]
  - Abortion spontaneous [Unknown]
  - Pregnancy [Unknown]
  - Human chorionic gonadotropin positive [Unknown]
  - Off label use [Unknown]

NARRATIVE: CASE EVENT DATE: 20220101
